FAERS Safety Report 8222746-X (Version None)
Quarter: 2012Q1

REPORT INFORMATION
  Report Type: 
  Country: None (occurrence: None)
  Receive Date: 20120315
  Receipt Date: 20120305
  Transmission Date: 20120608
  Serious: Yes (Other)
  Sender: FDA-Public Use
  Company Number: 2010SP060003

PATIENT
  Age: 58 Year
  Sex: Female
  Weight: 54 kg

DRUGS (8)
  1. CLONAZEPAM [Concomitant]
  2. MAGMITT [Concomitant]
  3. PRAMIPEXOLE DIHYDROCHLORIDE [Concomitant]
  4. TEMODAL [Suspect]
     Indication: BRAIN NEOPLASM
     Dosage: 100 MG;QD;INDRP 150 MG/M2;PO
     Route: 048
     Dates: start: 20100929, end: 20101020
  5. TEMODAL [Suspect]
     Indication: BRAIN NEOPLASM
     Dosage: 100 MG;QD;INDRP 150 MG/M2;PO
     Route: 048
     Dates: start: 20101218, end: 20110413
  6. ROHYPNOL [Concomitant]
  7. FAMOTIDINE [Concomitant]
  8. PREDNISOLONE [Concomitant]

REACTIONS (3)
  - HEPATIC FUNCTION ABNORMAL [None]
  - ASPARTATE AMINOTRANSFERASE INCREASED [None]
  - ALANINE AMINOTRANSFERASE INCREASED [None]
